FAERS Safety Report 15896370 (Version 1)
Quarter: 2019Q1

REPORT INFORMATION
  Report Type: Spontaneous
  Country: US (occurrence: US)
  Receive Date: 20190131
  Receipt Date: 20190131
  Transmission Date: 20190417
  Serious: Yes (Other)
  Sender: FDA-Public Use
  Company Number: US-BAYER-2019-018688

PATIENT
  Age: 74 Year
  Sex: Female

DRUGS (4)
  1. STIVARGA [Suspect]
     Active Substance: REGORAFENIB
     Indication: COLON CANCER
     Dosage: 80 MG DAILY
     Route: 048
     Dates: start: 201812
  2. STIVARGA [Suspect]
     Active Substance: REGORAFENIB
     Indication: COLON CANCER
     Dosage: 160 MG DAILY
     Route: 048
  3. TYLENOL [Concomitant]
     Active Substance: ACETAMINOPHEN
  4. STIVARGA [Suspect]
     Active Substance: REGORAFENIB
     Indication: COLON CANCER
     Dosage: 120 MG DAILY
     Route: 048

REACTIONS (11)
  - Fatigue [None]
  - Discomfort [None]
  - Flatulence [None]
  - Lethargy [None]
  - Initial insomnia [None]
  - Pulmonary thrombosis [None]
  - Faeces discoloured [None]
  - Gastrointestinal pain [None]
  - Diarrhoea [None]
  - Pleurisy [None]
  - Asthenia [None]
